FAERS Safety Report 4962821-6 (Version None)
Quarter: 2006Q2

REPORT INFORMATION
  Report Type: 
  Country: None (occurrence: None)
  Receive Date: 20060403
  Receipt Date: 20060403
  Transmission Date: 20061013
  Serious: No
  Sender: FDA-Public Use
  Company Number: None

PATIENT
  Age: 55 Year
  Sex: Female
  Weight: 56.6996 kg

DRUGS (1)
  1. AMBIEN [Suspect]
     Indication: INSOMNIA
     Dosage: 5-10 MG NIGHTLY
     Dates: start: 20060201, end: 20060331

REACTIONS (3)
  - ABNORMAL SLEEP-RELATED EVENT [None]
  - AMNESIA [None]
  - EATING DISORDER [None]
